FAERS Safety Report 21155867 (Version 1)
Quarter: 2022Q3

REPORT INFORMATION
  Report Type: Spontaneous
  Country: US (occurrence: US)
  Receive Date: 20220801
  Receipt Date: 20220801
  Transmission Date: 20221027
  Serious: No
  Sender: FDA-Public Use
  Company Number: US-MYLANLABS-2022M1081702

PATIENT
  Sex: Male

DRUGS (1)
  1. NITROGLYCERIN TRANSDERMAL DELIVERY SYSTEM [Suspect]
     Active Substance: NITROGLYCERIN
     Indication: Tendonitis
     Dosage: 0.2 MILLIGRAM, QD (6 TO 7 HOURS ONLY)
     Route: 062

REACTIONS (2)
  - Intentional product misuse [Unknown]
  - Off label use [Unknown]
